FAERS Safety Report 9830126 (Version 1)
Quarter: 2014Q1

REPORT INFORMATION
  Report Type: Spontaneous
  Country: IN (occurrence: IN)
  Receive Date: 20140120
  Receipt Date: 20140120
  Transmission Date: 20141002
  Serious: Yes (Other)
  Sender: FDA-Public Use
  Company Number: IN-MYLANLABS-2014S1000576

PATIENT
  Age: 48 Year
  Sex: Male

DRUGS (4)
  1. SODIUM VALPROATE [Suspect]
     Dosage: 1500MG/DAY
     Route: 065
  2. RISPERIDONE [Suspect]
     Dosage: 6MG/DAY
     Route: 065
  3. LITHIUM [Suspect]
     Indication: BIPOLAR DISORDER
     Route: 065
  4. OLANZAPINE [Concomitant]
     Indication: BIPOLAR DISORDER
     Route: 065

REACTIONS (2)
  - Priapism [Recovered/Resolved]
  - Hypothyroidism [Unknown]
